FAERS Safety Report 15332926 (Version 1)
Quarter: 2018Q3

REPORT INFORMATION
  Report Type: Spontaneous
  Country: GB (occurrence: GB)
  Receive Date: 20180830
  Receipt Date: 20180830
  Transmission Date: 20181010
  Serious: Yes (Hospitalization)
  Sender: FDA-Public Use
  Company Number: GB-TEVA-2018-GB-948758

PATIENT
  Sex: Female

DRUGS (4)
  1. PRAMIPEXOL [Suspect]
     Active Substance: PRAMIPEXOLE
     Indication: PARKINSON^S DISEASE
     Route: 065
  2. LANSOPRAZOLE. [Suspect]
     Active Substance: LANSOPRAZOLE
     Route: 065
  3. SINEMET PLUS [Suspect]
     Active Substance: CARBIDOPA\LEVODOPA
     Indication: PARKINSON^S DISEASE
     Route: 065
  4. AZILECT [Suspect]
     Active Substance: RASAGILINE MESYLATE
     Indication: PARKINSON^S DISEASE
     Route: 065

REACTIONS (5)
  - Dyspnoea [Unknown]
  - Malaise [Unknown]
  - Pulmonary embolism [Unknown]
  - Pulmonary hypertension [Unknown]
  - Pulmonary thrombosis [Recovered/Resolved]
